FAERS Safety Report 6580496-X (Version None)
Quarter: 2010Q1

REPORT INFORMATION
  Report Type: 
  Country: None (occurrence: None)
  Receive Date: 20100203
  Receipt Date: 20100119
  Transmission Date: 20100710
  Serious: No
  Sender: FDA-Public Use
  Company Number: B0629615A

PATIENT
  Age: 51 Year
  Sex: Male

DRUGS (3)
  1. ABACAVIR SULFATE [Suspect]
     Indication: HIV INFECTION
     Dosage: 300 MG TWICE PER DAY
  2. EFAVIRENZ [Suspect]
     Indication: HIV INFECTION
  3. NELFINAVIR MESYLATE [Suspect]
     Indication: HIV INFECTION
     Dosage: 1250 MG TWICE PER DAY

REACTIONS (3)
  - ANTERIOR INTEROSSEOUS SYNDROME [None]
  - DRUG RESISTANCE [None]
  - FALL [None]
